FAERS Safety Report 15570947 (Version 1)
Quarter: 2018Q4

REPORT INFORMATION
  Report Type: Spontaneous
  Country: US (occurrence: US)
  Receive Date: 20181031
  Receipt Date: 20181031
  Transmission Date: 20190205
  Serious: No
  Sender: FDA-Public Use
  Company Number: US-TEVA-2018-US-968651

PATIENT
  Age: 64 Year
  Sex: Female

DRUGS (1)
  1. COPAXONE [Suspect]
     Active Substance: GLATIRAMER ACETATE
     Indication: MULTIPLE SCLEROSIS
     Dosage: FORM STRENGTH : UNKNOWN
     Route: 058

REACTIONS (4)
  - Palpitations [Unknown]
  - Head discomfort [Unknown]
  - Muscle tightness [Unknown]
  - Flushing [Unknown]

NARRATIVE: CASE EVENT DATE: 20181001
